FAERS Safety Report 25559779 (Version 1)
Quarter: 2025Q3

REPORT INFORMATION
  Report Type: Spontaneous
  Country: US (occurrence: US)
  Receive Date: 20250715
  Receipt Date: 20250715
  Transmission Date: 20251020
  Serious: No
  Sender: NOVO NORDISK
  Company Number: US-NOVOPROD-1420427

PATIENT
  Sex: Male

DRUGS (1)
  1. OZEMPIC [Suspect]
     Active Substance: SEMAGLUTIDE
     Indication: Type 2 diabetes mellitus
     Dosage: 0.5 MG, TWO WEEKLY DOSES TO EQUAL 1 MG

REACTIONS (4)
  - Pruritus genital [Unknown]
  - Pain in extremity [Unknown]
  - Decreased appetite [Unknown]
  - Wrong technique in product usage process [Unknown]
